FAERS Safety Report 7381365-8 (Version None)
Quarter: 2011Q1

REPORT INFORMATION
  Report Type: 
  Country: None (occurrence: None)
  Receive Date: 20110321
  Receipt Date: 20110310
  Transmission Date: 20110831
  Serious: Yes (Hospitalization)
  Sender: FDA-Public Use
  Company Number: 1000019207

PATIENT
  Sex: Female

DRUGS (3)
  1. SAVELLA [Suspect]
     Indication: FIBROMYALGIA
     Dosage: 12.5 MG (12.5 MG, 1 IN 1 D), ORAL; 25 MG (12.5 MG, 2 IN 1 D), ORAL ; 50 MG (25 , 2 IN 1 D), ORAL
     Route: 048
  2. SAVELLA [Suspect]
     Indication: FIBROMYALGIA
     Dosage: 12.5 MG (12.5 MG, 1 IN 1 D), ORAL; 25 MG (12.5 MG, 2 IN 1 D), ORAL ; 50 MG (25 , 2 IN 1 D), ORAL
     Route: 048
  3. SAVELLA [Suspect]
     Indication: FIBROMYALGIA
     Dosage: 100 MG (50 MG, 2 IN 1 D), ORAL
     Route: 048
     Dates: end: 20110201

REACTIONS (6)
  - UPPER RESPIRATORY TRACT INFECTION [None]
  - PYREXIA [None]
  - PLEURAL EFFUSION [None]
  - HYPERTENSION [None]
  - PERICARDITIS [None]
  - SEROSITIS [None]
